FAERS Safety Report 4743174-5 (Version None)
Quarter: 2005Q3

REPORT INFORMATION
  Report Type: 
  Country: None (occurrence: None)
  Receive Date: 20050811
  Receipt Date: 20050728
  Transmission Date: 20060218
  Serious: Yes (Death, Other)
  Sender: FDA-Public Use
  Company Number: 2005107802

PATIENT
  Age: 42 Year
  Sex: Male
  Weight: 41 kg

DRUGS (10)
  1. VFEND [Suspect]
     Indication: BRONCHOPULMONARY ASPERGILLOSIS
     Dosage: 200 MG (100 MG, BID INTERVAL: EVERY DAY)
     Dates: start: 20050721
  2. VANCOMYCIN [Concomitant]
  3. TRUVADA (EMTRICITABINE, TENOFOVIR DISOPROXIL FUMARATE) [Concomitant]
  4. SUSTIVA [Concomitant]
  5. AMIKACIN [Concomitant]
  6. ALBUTEROL NEBULES (SALBUMATOL) [Concomitant]
  7. PIPERICILLIN (PIPERICILLIN) [Concomitant]
  8. ATOVAQUONE [Concomitant]
  9. VALTREX [Concomitant]
  10. NEUPEON (FILGRASTIM) [Concomitant]

REACTIONS (3)
  - HYPOXIA [None]
  - PNEUMONIA KLEBSIELLA [None]
  - RESPIRATORY FAILURE [None]
